FAERS Safety Report 4646166-X (Version None)
Quarter: 2005Q2

REPORT INFORMATION
  Report Type: 
  Country: None (occurrence: None)
  Receive Date: 20050425
  Receipt Date: 20050412
  Transmission Date: 20051028
  Serious: Yes (Hospitalization)
  Sender: FDA-Public Use
  Company Number: 2005-127487-NL

PATIENT
  Age: 42 Year
  Sex: Female

DRUGS (4)
  1. FOLLITROPIN BETA [Suspect]
     Indication: INFERTILITY FEMALE
     Dosage: DF
  2. CHORIONIC GONADOTROPIN [Suspect]
     Indication: INFERTILITY FEMALE
     Dosage: DF
  3. NAFARELIN ACETATE [Suspect]
     Indication: INFERTILITY FEMALE
     Dosage: DF
  4. PROGESTERONE [Concomitant]

REACTIONS (6)
  - ASCITES [None]
  - INVESTIGATION ABNORMAL [None]
  - LYMPHADENOPATHY [None]
  - OVARIAN HYPERSTIMULATION SYNDROME [None]
  - PREGNANCY [None]
  - WEIGHT INCREASED [None]
